FAERS Safety Report 12847053 (Version 1)
Quarter: 2016Q4

REPORT INFORMATION
  Report Type: Spontaneous
  Country: FR (occurrence: FR)
  Receive Date: 20161014
  Receipt Date: 20161014
  Transmission Date: 20170207
  Serious: Yes (Hospitalization)
  Sender: FDA-Public Use
  Company Number: FR-CONCORDIA PHARMACEUTICALS INC.-E2B_00007865

PATIENT
  Age: 57 Year
  Sex: Female

DRUGS (17)
  1. LEVOTHYROX [Concomitant]
     Active Substance: LEVOTHYROXINE
  2. OXYNORM [Concomitant]
     Active Substance: OXYCODONE HYDROCHLORIDE
  3. CALCIDOSE VITAMINE D [Concomitant]
     Active Substance: CALCIUM\CHOLECALCIFEROL
  4. MIRTAZAPINE. [Concomitant]
     Active Substance: MIRTAZAPINE
  5. LORMETAZEPAM [Concomitant]
     Active Substance: LORMETAZEPAM
  6. PLAQUENIL [Suspect]
     Active Substance: HYDROXYCHLOROQUINE SULFATE
     Indication: CUTANEOUS LUPUS ERYTHEMATOSUS
     Route: 048
     Dates: start: 201404, end: 20150731
  7. LANSOPRAZOLE. [Concomitant]
     Active Substance: LANSOPRAZOLE
  8. LYRICA [Concomitant]
     Active Substance: PREGABALIN
  9. DAFLAGAN [Concomitant]
  10. CALCIPARINE [Concomitant]
     Active Substance: HEPARIN CALCIUM
  11. OXYCONTIN [Concomitant]
     Active Substance: OXYCODONE HYDROCHLORIDE
  12. CETRIZINE [Concomitant]
     Active Substance: CETIRIZINE HYDROCHLORIDE
  13. MOVICOL [Concomitant]
     Active Substance: POLYETHYLENE GLYCOL 3350\POTASSIUM CHLORIDE\SODIUM BICARBONATE\SODIUM CHLORIDE
  14. EZETROL [Suspect]
     Active Substance: EZETIMIBE
     Indication: HYPERCHOLESTEROLAEMIA
     Route: 048
     Dates: end: 20150731
  15. SERESTA [Concomitant]
     Active Substance: OXAZEPAM
  16. BISOPROLOL [Concomitant]
     Active Substance: BISOPROLOL
  17. CANDESARTAN CILEXETIL. [Concomitant]
     Active Substance: CANDESARTAN CILEXETIL

REACTIONS (2)
  - Myalgia [Recovered/Resolved]
  - Paresis [Recovered/Resolved]

NARRATIVE: CASE EVENT DATE: 201502
